FAERS Safety Report 24993766 (Version 2)
Quarter: 2025Q1

REPORT INFORMATION
  Report Type: Spontaneous
  Country: US (occurrence: US)
  Receive Date: 20250221
  Receipt Date: 20250319
  Transmission Date: 20250409
  Serious: No
  Sender: LEO PHARM
  Company Number: US-LEO Pharma-377753

PATIENT
  Age: 29 Year
  Sex: Male

DRUGS (1)
  1. ADBRY [Suspect]
     Active Substance: TRALOKINUMAB-LDRM
     Indication: Dermatitis atopic
     Dosage: TREATMENT IS ONGOING
     Dates: end: 202406

REACTIONS (7)
  - Nasal discomfort [Unknown]
  - Nasal pruritus [Unknown]
  - Eye pruritus [Not Recovered/Not Resolved]
  - Dermatitis atopic [Unknown]
  - Ocular hyperaemia [Unknown]
  - Nasal congestion [Unknown]
  - Eye irritation [Unknown]
